FAERS Safety Report 15769343 (Version 2)
Quarter: 2020Q2

REPORT INFORMATION
  Report Type: Spontaneous
  Country: US (occurrence: US)
  Receive Date: 20181228
  Receipt Date: 20200429
  Transmission Date: 20200713
  Serious: Yes (Other)
  Sender: FDA-Public Use
  Company Number: US-BRISTOL-MYERS SQUIBB COMPANY-BMS-2018-122142

PATIENT
  Age: 67 Year
  Sex: Male
  Weight: 115 kg

DRUGS (1)
  1. ELIQUIS [Suspect]
     Active Substance: APIXABAN
     Indication: ARTERIAL GRAFT
     Dosage: 5 MG, BID
     Route: 065

REACTIONS (2)
  - Intentional product use issue [Unknown]
  - Lung disorder [Unknown]
